FAERS Safety Report 6140804-0 (Version None)
Quarter: 2009Q2

REPORT INFORMATION
  Report Type: 
  Country: None (occurrence: None)
  Receive Date: 20090401
  Receipt Date: 20090401
  Transmission Date: 20091009
  Serious: Yes (Hospitalization)
  Sender: FDA-Public Use
  Company Number: None

PATIENT
  Sex: Female
  Weight: 44 kg

DRUGS (3)
  1. CARBOPLATIN [Suspect]
     Dosage: 690 MG
  2. G-CSF (FILGRASTIM, AMGEN) [Suspect]
     Dosage: 150 MCG
  3. TAXOL [Suspect]
     Dosage: 190 MG

REACTIONS (1)
  - THROMBOCYTOPENIA [None]
